FAERS Safety Report 5613061-9 (Version None)
Quarter: 2008Q1

REPORT INFORMATION
  Report Type: 
  Country: None (occurrence: None)
  Receive Date: 20080204
  Receipt Date: 20080124
  Transmission Date: 20080703
  Serious: Yes (Other)
  Sender: FDA-Public Use
  Company Number: SE-PFIZER INC-2008007765

PATIENT
  Sex: Female

DRUGS (2)
  1. XALATAN [Suspect]
     Route: 047
  2. CROMOLYN SODIUM [Concomitant]

REACTIONS (5)
  - CORNEAL LESION [None]
  - DEPOSIT EYE [None]
  - EYE INFECTION [None]
  - HYPERSENSITIVITY [None]
  - REACTION TO PRESERVATIVES [None]
